FAERS Safety Report 10285817 (Version 1)
Quarter: 2014Q3

REPORT INFORMATION
  Report Type: Spontaneous
  Country: US (occurrence: None)
  Receive Date: 20140703
  Receipt Date: 20140703
  Transmission Date: 20150326
  Serious: Yes (Hospitalization)
  Sender: FDA-Public Use
  Company Number: UNT-2014-002826

PATIENT
  Sex: Female

DRUGS (12)
  1. TYVASO [Suspect]
     Active Substance: TREPROSTINIL
     Indication: COR PULMONALE CHRONIC
     Route: 055
     Dates: start: 20140407, end: 20140618
  2. TYLENOL [Concomitant]
     Active Substance: ACETAMINOPHEN
  3. TYVASO [Suspect]
     Active Substance: TREPROSTINIL
     Indication: PULMONARY ARTERIAL HYPERTENSION
     Route: 055
     Dates: start: 20140407, end: 20140618
  4. NEXIUM [Concomitant]
     Active Substance: ESOMEPRAZOLE MAGNESIUM
  5. ADVAIR DISKUS [Concomitant]
     Active Substance: FLUTICASONE PROPIONATE\SALMETEROL XINAFOATE
  6. ALEVE (NAPROXEN SODIUM) [Concomitant]
  7. PROAIR HFA [Concomitant]
     Active Substance: ALBUTEROL SULFATE
  8. ETHAMBUTOL [Concomitant]
     Active Substance: ETHAMBUTOL HYDROCHLORIDE
  9. SILDENAFIL (SILDENAFIL) [Concomitant]
     Active Substance: SILDENAFIL
  10. SPIRIVA [Concomitant]
     Active Substance: TIOTROPIUM BROMIDE MONOHYDRATE
  11. NIFEDIPINE (NIFEDIPINE) [Concomitant]
  12. VALSARTAN (VALSARTAN) [Concomitant]
     Active Substance: VALSARTAN

REACTIONS (4)
  - Pain in extremity [None]
  - Dyspnoea [None]
  - Chest pain [None]
  - Cough [None]

NARRATIVE: CASE EVENT DATE: 20140618
